FAERS Safety Report 22143721 (Version 1)
Quarter: 2023Q1

REPORT INFORMATION
  Report Type: Spontaneous
  Country: US (occurrence: US)
  Receive Date: 20230327
  Receipt Date: 20230327
  Transmission Date: 20230418
  Serious: Yes (Other)
  Sender: FDA-Public Use
  Company Number: US-APIL-2309423US

PATIENT
  Sex: Female

DRUGS (2)
  1. RESTASIS [Suspect]
     Active Substance: CYCLOSPORINE
     Indication: Product used for unknown indication
     Dosage: UNK
     Route: 047
     Dates: start: 202302
  2. RESTASIS [Suspect]
     Active Substance: CYCLOSPORINE
     Dosage: UNK
     Route: 047
     Dates: end: 202208

REACTIONS (9)
  - Cataract [Unknown]
  - Inflammation [Unknown]
  - Oropharyngeal pain [Unknown]
  - Nasal congestion [Unknown]
  - Ear discomfort [Unknown]
  - Sinus disorder [Unknown]
  - Multiple allergies [Unknown]
  - Burning sensation [Unknown]
  - Dry mouth [Unknown]

NARRATIVE: CASE EVENT DATE: 20220801
